FAERS Safety Report 7540952-4 (Version None)
Quarter: 2011Q2

REPORT INFORMATION
  Report Type: 
  Country: None (occurrence: None)
  Receive Date: 20110610
  Receipt Date: 20110606
  Transmission Date: 20111010
  Serious: No
  Sender: FDA-Public Use
  Company Number: US-PFIZER INC-2011122825

PATIENT
  Sex: Female

DRUGS (2)
  1. CLEOCIN HYDROCHLORIDE [Suspect]
     Indication: DENTAL IMPLANTATION
     Dosage: 150 MG, EVERY FOUR HOURS
     Route: 048
     Dates: start: 20110501
  2. ZOCOR [Concomitant]
     Indication: BLOOD CHOLESTEROL INCREASED
     Dosage: UNK

REACTIONS (2)
  - THROAT IRRITATION [None]
  - COUGH [None]
